FAERS Safety Report 11184619 (Version 2)
Quarter: 2015Q2

REPORT INFORMATION
  Report Type: Spontaneous
  Country: IT (occurrence: IT)
  Receive Date: 20150612
  Receipt Date: 20150628
  Transmission Date: 20150821
  Serious: Yes (Hospitalization)
  Sender: FDA-Public Use
  Company Number: IT-009507513-1506ITA005666

PATIENT
  Age: 75 Year
  Sex: Female

DRUGS (7)
  1. AMISULPRIDE [Concomitant]
     Active Substance: AMISULPRIDE
     Indication: HALLUCINATION
     Route: 048
  2. ZANEDIP [Concomitant]
     Active Substance: LERCANIDIPINE HYDROCHLORIDE
     Route: 048
  3. TAVOR [Concomitant]
     Active Substance: LORAZEPAM
     Route: 048
  4. SINEMET [Suspect]
     Active Substance: CARBIDOPA\LEVODOPA
     Indication: PARKINSON^S DISEASE
     Dosage: 1 DOSE UNIT, ONCE
     Route: 048
     Dates: start: 20150513, end: 20150513
  5. CHOLECALCIFEROL [Concomitant]
     Active Substance: CHOLECALCIFEROL
     Route: 048
  6. TRIATEC (RAMIPRIL) [Concomitant]
     Active Substance: RAMIPRIL
     Route: 048
  7. LANSOPRAZOLE. [Concomitant]
     Active Substance: LANSOPRAZOLE
     Route: 048

REACTIONS (6)
  - Loss of consciousness [Unknown]
  - Fall [Unknown]
  - Hypokalaemia [Unknown]
  - Post concussion syndrome [Unknown]
  - Presyncope [Unknown]
  - Vertigo [Unknown]

NARRATIVE: CASE EVENT DATE: 20150513
